FAERS Safety Report 16223257 (Version 1)
Quarter: 2019Q2

REPORT INFORMATION
  Report Type: Spontaneous
  Country: US (occurrence: US)
  Receive Date: 20190422
  Receipt Date: 20190422
  Transmission Date: 20190711
  Serious: Yes (Other)
  Sender: FDA-Public Use
  Company Number: None

PATIENT
  Age: 64 Year
  Sex: Female
  Weight: 123.38 kg

DRUGS (11)
  1. KORLYM [Suspect]
     Active Substance: MIFEPRISTONE
     Indication: DIABETES MELLITUS MANAGEMENT
     Route: 048
     Dates: start: 20180620, end: 20181226
  2. SPIRONOLACTONE. [Concomitant]
     Active Substance: SPIRONOLACTONE
  3. MAGNESIUM [Concomitant]
     Active Substance: MAGNESIUM
  4. VITAMIN D3 [Concomitant]
     Active Substance: CHOLECALCIFEROL
  5. VITAMIN C [Concomitant]
     Active Substance: ASCORBIC ACID
  6. PANTOPRAZOLE [Concomitant]
     Active Substance: PANTOPRAZOLE
  7. TRESIBA [Concomitant]
     Active Substance: INSULIN DEGLUDEC
  8. METOPROLOL TARTRATE. [Concomitant]
     Active Substance: METOPROLOL TARTRATE
  9. HYDRALAZINE HCT [Concomitant]
  10. HYDROCODONE [Concomitant]
     Active Substance: HYDROCODONE
  11. NOVOLOG [Concomitant]
     Active Substance: INSULIN ASPART

REACTIONS (10)
  - Asthenia [None]
  - Anxiety [None]
  - Decreased appetite [None]
  - Arthralgia [None]
  - Myalgia [None]
  - Mobility decreased [None]
  - Visual impairment [None]
  - Nausea [None]
  - Impaired quality of life [None]
  - Abnormal loss of weight [None]

NARRATIVE: CASE EVENT DATE: 20180620
